FAERS Safety Report 23704644 (Version 2)
Quarter: 2024Q4

REPORT INFORMATION
  Report Type: Spontaneous
  Country: FR (occurrence: None)
  Receive Date: 20240404
  Receipt Date: 20241002
  Transmission Date: 20250114
  Serious: Yes (Death, Hospitalization)
  Sender: ORION
  Company Number: FR-Orion Corporation ORION PHARMA-ENTC2024-0034

PATIENT
  Age: 75 Year
  Sex: Male

DRUGS (1)
  1. STALEVO [Suspect]
     Active Substance: CARBIDOPA\ENTACAPONE\LEVODOPA
     Indication: Product used for unknown indication
     Dosage: STRENGTH: 100/25/200 MG

REACTIONS (4)
  - Death [Fatal]
  - Hospitalisation [Unknown]
  - Product storage error [Unknown]
  - Suspected product contamination [Unknown]
